FAERS Safety Report 17984746 (Version 3)
Quarter: 2021Q1

REPORT INFORMATION
  Report Type: Report from Study
  Country: PE (occurrence: PE)
  Receive Date: 20200706
  Receipt Date: 20210223
  Transmission Date: 20210419
  Serious: Yes (Hospitalization)
  Sender: FDA-Public Use
  Company Number: PE-JNJFOC-20200637990

PATIENT
  Age: 34 Year
  Sex: Female

DRUGS (2)
  1. GRAVOL [Concomitant]
     Active Substance: DIMENHYDRINATE
  2. SIMPONI [Suspect]
     Active Substance: GOLIMUMAB
     Indication: RHEUMATOID ARTHRITIS
     Route: 058
     Dates: start: 20200225

REACTIONS (4)
  - Asymptomatic COVID-19 [Recovered/Resolved]
  - Exposure during pregnancy [Unknown]
  - Abortion spontaneous [Unknown]
  - Urinary tract infection [Not Recovered/Not Resolved]

NARRATIVE: CASE EVENT DATE: 20200619
